FAERS Safety Report 8828595 (Version 1)
Quarter: 2012Q4

REPORT INFORMATION
  Report Type: 
  Country: FR (occurrence: FR)
  Receive Date: 20121005
  Receipt Date: 20121005
  Transmission Date: 20130627
  Serious: Yes (Other)
  Sender: FDA-Public Use
  Company Number: FR-RANBAXY-2012RR-60465

PATIENT
  Age: 56 Year
  Sex: Male

DRUGS (10)
  1. MYCOPHENOLATE MOFETIL [Suspect]
     Indication: HEART TRANSPLANT
     Dosage: 2 g/day
     Route: 065
  2. MYCOPHENOLATE MOFETIL [Suspect]
     Indication: LUNG TRANSPLANT
  3. CICLOSPORIN [Suspect]
     Indication: HEART TRANSPLANT
     Dosage: target blood concentration of 280-320 ng/ml
     Route: 065
  4. CICLOSPORIN [Suspect]
     Indication: LUNG TRANSPLANT
  5. PREDNISOLONE [Suspect]
     Indication: HEART TRANSPLANT
     Dosage: 20 mg/day
     Route: 065
  6. PREDNISOLONE [Suspect]
     Indication: LUNG TRANSPLANT
  7. FLUCONAZOLE [Suspect]
     Indication: CANDIDIASIS
     Dosage: 100 mg/day
     Route: 065
  8. VORICONAZOLE [Suspect]
     Indication: PRODUCT USED FOR UNKNOWN INDICATION
     Dosage: UNK
     Route: 065
  9. CASPOFUNGIN [Suspect]
     Indication: FUNGAL INFECTION
     Dosage: 70 mg as loading dose followed by 50 mg/day
     Route: 065
  10. CASPOFUNGIN [Suspect]
     Dosage: 50 mg/day
     Route: 065

REACTIONS (5)
  - Alternaria infection [Unknown]
  - Endocarditis bacterial [Unknown]
  - Mediastinitis [Unknown]
  - Confusional state [Unknown]
  - Hallucination [Unknown]
